FAERS Safety Report 8514973 (Version 3)
Quarter: 2012Q4

REPORT INFORMATION
  Report Type: 
  Country: US (occurrence: US)
  Receive Date: 20120416
  Receipt Date: 20121012
  Transmission Date: 20130627
  Serious: Yes (Life-Threatening, Hospitalization)
  Sender: FDA-Public Use
  Company Number: US-RB-039101-12

PATIENT
  Age: 71 Year
  Sex: Male

DRUGS (5)
  1. BUPRENORPHINE HYDROCHLORIDE/NALOXONE HYDROCHLORIDE [Suspect]
     Indication: PRODUCT USED FOR UNKNOWN INDICATION
     Dosage: Tapering doses
     Route: 065
  2. BUPRENORPHINE HYDROCHLORIDE/NALOXONE HYDROCHLORIDE [Suspect]
     Dosage: Dosing details unknown
     Route: 065
  3. SUBOXONE TABLET [Suspect]
     Indication: DRUG DEPENDENCE
     Route: 060
     Dates: start: 2009
  4. KLONOPIN [Suspect]
     Indication: ANXIETY
     Dosage: 6-10 mgs daily
     Route: 065
  5. ATIVAN [Concomitant]
     Indication: PRODUCT USED FOR UNKNOWN INDICATION
     Dosage: Unknown dosage details
     Route: 065

REACTIONS (11)
  - Suicidal ideation [Recovered/Resolved]
  - Hallucination [Recovered/Resolved]
  - Depression [Recovered/Resolved]
  - Fall [Recovered/Resolved]
  - Anxiety [Not Recovered/Not Resolved]
  - Drug withdrawal syndrome [Not Recovered/Not Resolved]
  - Dyspnoea [Not Recovered/Not Resolved]
  - Restlessness [Not Recovered/Not Resolved]
  - Aggression [Recovered/Resolved]
  - Head injury [Recovered/Resolved]
  - Underdose [Recovered/Resolved]
